FAERS Safety Report 16234363 (Version 3)
Quarter: 2019Q2

REPORT INFORMATION
  Report Type: Report from Study
  Country: DE (occurrence: DE)
  Receive Date: 20190424
  Receipt Date: 20190522
  Transmission Date: 20190711
  Serious: Yes (Hospitalization, Other)
  Sender: FDA-Public Use
  Company Number: PHHY2019DE091376

PATIENT
  Sex: Female
  Weight: 47 kg

DRUGS (2)
  1. LETROZOLE. [Suspect]
     Active Substance: LETROZOLE
     Indication: BREAST CANCER METASTATIC
     Dosage: 2.5 MG, QD
     Route: 048
     Dates: start: 20180730, end: 20190328
  2. KISQALI [Suspect]
     Active Substance: RIBOCICLIB
     Indication: BREAST CANCER METASTATIC
     Dosage: 600 MG, QD (1-21)
     Route: 048
     Dates: start: 20180730, end: 20190328

REACTIONS (7)
  - Pyrexia [Recovered/Resolved]
  - Viral infection [Unknown]
  - Pneumonia chlamydial [Unknown]
  - Metabolic alkalosis [Unknown]
  - Bronchitis [Recovered/Resolved]
  - Pyrexia [Unknown]
  - White blood cell count decreased [Unknown]

NARRATIVE: CASE EVENT DATE: 20190326
